FAERS Safety Report 16844588 (Version 1)
Quarter: 2019Q4

REPORT INFORMATION
  Report Type: Spontaneous
  Country: US (occurrence: US)
  Receive Date: 20190923
  Receipt Date: 20190923
  Transmission Date: 20200122
  Serious: Yes (Life-Threatening, Hospitalization)
  Sender: FDA-Public Use
  Company Number: None

PATIENT
  Age: 73 Year
  Sex: Female
  Weight: 81.1 kg

DRUGS (1)
  1. DIGOXIN. [Suspect]
     Active Substance: DIGOXIN
     Indication: CARDIAC FAILURE
     Route: 048

REACTIONS (5)
  - Fatigue [None]
  - Diarrhoea [None]
  - Dizziness [None]
  - Chronic kidney disease [None]
  - Heart rate decreased [None]

NARRATIVE: CASE EVENT DATE: 20190912
